FAERS Safety Report 8965029 (Version 1)
Quarter: 2012Q4

REPORT INFORMATION
  Report Type: 
  Country: GB (occurrence: GB)
  Receive Date: 20121213
  Receipt Date: 20121213
  Transmission Date: 20130627
  Serious: Yes (Other)
  Sender: FDA-Public Use
  Company Number: GB-US-EMD SERONO, INC.-7167462

PATIENT
  Sex: Female

DRUGS (2)
  1. REBIF [Suspect]
     Indication: PRODUCT USED FOR UNKNOWN INDICATION
     Dates: start: 2003
  2. REBIF [Suspect]
     Dates: start: 200305, end: 201212

REACTIONS (4)
  - Vitreous haemorrhage [Unknown]
  - Night blindness [Unknown]
  - Retinal vein occlusion [Unknown]
  - Neovascularisation [Unknown]
